FAERS Safety Report 9786430 (Version 2)
Quarter: 2013Q4

REPORT INFORMATION
  Report Type: Report from Study
  Country: US (occurrence: US)
  Receive Date: 20131227
  Receipt Date: 20131227
  Transmission Date: 20140711
  Serious: Yes (Other)
  Sender: FDA-Public Use
  Company Number: US-ABBVIE-13P-163-1115490-00

PATIENT
  Sex: Male

DRUGS (8)
  1. HUMIRA [Suspect]
     Indication: COLITIS ULCERATIVE
     Dates: start: 2006, end: 2006
  2. HUMIRA [Suspect]
  3. MEDICATION FOR DEPRESSION [Suspect]
     Indication: DEPRESSION
  4. MEDICATION FOR DEPRESSION [Suspect]
     Dates: start: 2013
  5. MEDICATION FOR NERVES AND SLEEP [Suspect]
     Indication: ANXIETY
     Dates: start: 2013, end: 2013
  6. MEDICATION FOR NERVES AND SLEEP [Suspect]
     Indication: INSOMNIA
  7. METOPROLOL [Concomitant]
     Indication: PRODUCT USED FOR UNKNOWN INDICATION
  8. NITRO [Concomitant]
     Indication: CHEST PAIN
     Route: 060

REACTIONS (16)
  - Blood pressure abnormal [Recovering/Resolving]
  - Myocardial infarction [Recovering/Resolving]
  - Loss of consciousness [Not Recovered/Not Resolved]
  - Malaise [Recovering/Resolving]
  - Asthenia [Recovering/Resolving]
  - Colitis ulcerative [Recovering/Resolving]
  - Depression [Recovering/Resolving]
  - Drug ineffective [Unknown]
  - Anxiety [Not Recovered/Not Resolved]
  - Sleep disorder [Not Recovered/Not Resolved]
  - Back pain [Not Recovered/Not Resolved]
  - Frequent bowel movements [Not Recovered/Not Resolved]
  - Hypophagia [Not Recovered/Not Resolved]
  - Activities of daily living impaired [Not Recovered/Not Resolved]
  - Malaise [Not Recovered/Not Resolved]
  - Muscle fatigue [Not Recovered/Not Resolved]
